FAERS Safety Report 5306919-1 (Version None)
Quarter: 2007Q2

REPORT INFORMATION
  Report Type: 
  Country: None (occurrence: None)
  Receive Date: 20070425
  Receipt Date: 20070420
  Transmission Date: 20071010
  Serious: Yes (Hospitalization, Other)
  Sender: FDA-Public Use
  Company Number: US-BRISTOL-MYERS SQUIBB COMPANY-13558614

PATIENT
  Age: 71 Year
  Sex: Female

DRUGS (11)
  1. CETUXIMAB [Suspect]
     Indication: NON-SMALL CELL LUNG CANCER
     Route: 042
     Dates: start: 20060817, end: 20060824
  2. TAXOL [Suspect]
     Indication: NON-SMALL CELL LUNG CANCER
     Route: 042
     Dates: start: 20060817, end: 20060817
  3. CARBOPLATIN [Suspect]
     Indication: NON-SMALL CELL LUNG CANCER
     Route: 042
     Dates: start: 20060817, end: 20060817
  4. FENTANYL TRANSDERMAL SYSTEM [Concomitant]
     Route: 061
  5. PERCOCET [Concomitant]
     Indication: PAIN
  6. ZOFRAN [Concomitant]
     Indication: VOMITING
     Route: 042
  7. COZAAR [Concomitant]
     Route: 048
  8. LIPITOR [Concomitant]
     Route: 048
  9. PROTONIX [Concomitant]
     Route: 048
  10. BETAPACE [Concomitant]
     Route: 048
  11. LUMIGAN [Concomitant]
     Route: 047

REACTIONS (6)
  - ELECTROLYTE IMBALANCE [None]
  - FEBRILE NEUTROPENIA [None]
  - HAEMATOCRIT DECREASED [None]
  - PLATELET COUNT DECREASED [None]
  - PLEURAL EFFUSION [None]
  - SEPSIS [None]
